FAERS Safety Report 7019189-3 (Version None)
Quarter: 2010Q3

REPORT INFORMATION
  Report Type: 
  Country: None (occurrence: None)
  Receive Date: 20100928
  Receipt Date: 20100922
  Transmission Date: 20110219
  Serious: Yes (Life-Threatening, Hospitalization)
  Sender: FDA-Public Use
  Company Number: US-GILEAD-2010-0031917

PATIENT
  Sex: Female
  Weight: 160.9 kg

DRUGS (9)
  1. LETAIRIS [Suspect]
     Indication: PULMONARY ARTERIAL HYPERTENSION
     Dates: start: 20090527, end: 20100801
  2. REVATIO [Concomitant]
  3. BUMEX [Concomitant]
  4. ALBUTEROL [Concomitant]
  5. ATROVENT [Concomitant]
  6. DOXYCYCLINE [Concomitant]
  7. LEVAQUIN [Concomitant]
  8. PROTONIX [Concomitant]
  9. POTASSIUM [Concomitant]

REACTIONS (3)
  - OEDEMA [None]
  - RESPIRATORY FAILURE [None]
  - SLEEP APNOEA SYNDROME [None]
